FAERS Safety Report 9665568 (Version 2)
Quarter: 2013Q4

REPORT INFORMATION
  Report Type: Spontaneous
  Country: JP (occurrence: JP)
  Receive Date: 20131104
  Receipt Date: 20131114
  Transmission Date: 20140711
  Serious: Yes (Other)
  Sender: FDA-Public Use
  Company Number: JP-SA-2013SA112004

PATIENT
  Age: 64 Year
  Sex: Male

DRUGS (10)
  1. MYSLEE [Suspect]
     Indication: PRODUCT USED FOR UNKNOWN INDICATION
     Route: 048
     Dates: start: 20130328
  2. HARNAL [Suspect]
     Indication: PRODUCT USED FOR UNKNOWN INDICATION
     Route: 048
     Dates: start: 20130501
  3. LAMISIL [Suspect]
     Indication: ONYCHOMYCOSIS
     Dosage: THERAPY END DATE: 2013 (CAPTURED AS ^UNKNOWN^ DUE TO AWARE RESTRICTIONS)
     Route: 048
     Dates: start: 20130828
  4. OLMETEC [Concomitant]
     Dates: start: 20130208
  5. ALLELOCK [Concomitant]
     Route: 048
     Dates: start: 20130531
  6. FEBURIC [Concomitant]
     Dates: start: 20130126
  7. EBASTEL [Concomitant]
  8. LOXONIN [Concomitant]
     Route: 048
     Dates: start: 20130328
  9. DEPAS [Concomitant]
     Route: 048
     Dates: start: 20130328
  10. ALFAROL [Concomitant]
     Route: 048

REACTIONS (1)
  - Platelet count decreased [Unknown]
